FAERS Safety Report 6184457-4 (Version None)
Quarter: 2009Q2

REPORT INFORMATION
  Report Type: 
  Country: None (occurrence: None)
  Receive Date: 20090507
  Receipt Date: 20090507
  Transmission Date: 20091009
  Serious: Yes (Hospitalization)
  Sender: FDA-Public Use
  Company Number: None

PATIENT
  Sex: Male
  Weight: 78.0187 kg

DRUGS (27)
  1. DIGOXIN [Suspect]
     Indication: CARDIAC FAILURE CONGESTIVE
     Dosage: 0.125 1 TAB. DAILY
  2. KCL TAB [Concomitant]
  3. ZAROXOLYN [Concomitant]
  4. ALBUTEROL [Concomitant]
  5. XOPENEX [Concomitant]
  6. SIMVASTATIN [Concomitant]
  7. FISH OIL [Concomitant]
  8. OSUVITE LUTEN [Concomitant]
  9. LEVOTHYROXINE SODIUM [Concomitant]
  10. CYANOCOBALAMIN [Concomitant]
  11. BUMEX [Concomitant]
  12. ALDACTONE [Concomitant]
  13. TOPROL-XL [Concomitant]
  14. FESO4 IRON [Concomitant]
  15. TRACLEER [Concomitant]
  16. TOPAMAX [Concomitant]
  17. ASPIRIN [Concomitant]
  18. PROTONIX [Concomitant]
  19. COUMADIN [Concomitant]
  20. SEROQUEL [Concomitant]
  21. COLACE [Concomitant]
  22. ADVAIR HFA [Concomitant]
  23. ZOLOFT [Concomitant]
  24. VESICARE [Concomitant]
  25. SPIRIVA [Concomitant]
  26. SYNTHROID [Concomitant]
  27. JANUVIN (SITAGLIPTIN PROGENATE) [Concomitant]

REACTIONS (12)
  - ABASIA [None]
  - CHEST PAIN [None]
  - CONFUSIONAL STATE [None]
  - COUGH [None]
  - DIZZINESS [None]
  - DYSPNOEA [None]
  - HYPOTENSION [None]
  - JOINT SWELLING [None]
  - NAUSEA [None]
  - OEDEMA PERIPHERAL [None]
  - PNEUMONIA [None]
  - WEIGHT DECREASED [None]
